FAERS Safety Report 6302206-3 (Version None)
Quarter: 2009Q3

REPORT INFORMATION
  Report Type: 
  Country: None (occurrence: None)
  Receive Date: 20090810
  Receipt Date: 20090731
  Transmission Date: 20100115
  Serious: Yes (Hospitalization)
  Sender: FDA-Public Use
  Company Number: US-BIOGENIDEC-100131

PATIENT
  Sex: Female
  Weight: 64 kg

DRUGS (7)
  1. AVONEX [Suspect]
     Indication: MULTIPLE SCLEROSIS
     Route: 030
     Dates: end: 19960626
  2. INDOMETHACIN [Concomitant]
     Indication: PAIN
  3. VICODIN [Concomitant]
     Indication: PAIN
  4. ELAVIL [Concomitant]
     Indication: SLEEP DISORDER
  5. CYLERT [Concomitant]
     Indication: FATIGUE
  6. KLONOPIN [Concomitant]
     Indication: MUSCLE SPASMS
  7. TYLENOL (CAPLET) [Concomitant]
     Indication: PAIN

REACTIONS (6)
  - ASTHENIA [None]
  - BACK PAIN [None]
  - FATIGUE [None]
  - INFLUENZA LIKE ILLNESS [None]
  - MULTIPLE SCLEROSIS RELAPSE [None]
  - PARALYSIS [None]
